FAERS Safety Report 9107222 (Version 1)
Quarter: 2013Q1

REPORT INFORMATION
  Report Type: Spontaneous
  Country: SE (occurrence: SE)
  Receive Date: 20130221
  Receipt Date: 20130221
  Transmission Date: 20140127
  Serious: Yes (Hospitalization)
  Sender: FDA-Public Use
  Company Number: SE-JNJFOC-20130208001

PATIENT
  Age: 75 Year
  Sex: Male

DRUGS (5)
  1. REMICADE [Suspect]
     Indication: RHEUMATOID ARTHRITIS
     Dosage: 6TH AND LAST INFUSION
     Route: 042
     Dates: start: 20121006
  2. REMICADE [Suspect]
     Indication: RHEUMATOID ARTHRITIS
     Route: 042
     Dates: start: 201201
  3. METHOTREXATE [Suspect]
     Indication: RHEUMATOID ARTHRITIS
     Dosage: DOSE WAS INCREASED
     Route: 065
     Dates: start: 200802
  4. METHOTREXATE [Suspect]
     Indication: RHEUMATOID ARTHRITIS
     Route: 065
     Dates: start: 200502, end: 200802
  5. METHOTREXATE [Suspect]
     Indication: RHEUMATOID ARTHRITIS
     Dosage: AGAIN THE DOSE WAS DECREASED
     Route: 065
     Dates: start: 200805, end: 201212

REACTIONS (3)
  - Alveolitis [Recovering/Resolving]
  - Pleural fibrosis [Recovering/Resolving]
  - Pyrexia [Recovering/Resolving]
